FAERS Safety Report 15547363 (Version 2)
Quarter: 2018Q4

REPORT INFORMATION
  Report Type: Spontaneous
  Country: DE (occurrence: DE)
  Receive Date: 20181024
  Receipt Date: 20181120
  Transmission Date: 20190205
  Serious: Yes (Other)
  Sender: FDA-Public Use
  Company Number: DE-PURDUE-GBR-2018-0060680

PATIENT
  Age: 72 Year
  Sex: Male

DRUGS (9)
  1. MAGNESIUM [Concomitant]
     Active Substance: MAGNESIUM
  2. INSULIN [Concomitant]
     Active Substance: INSULIN NOS
  3. PALLADONE [Interacting]
     Active Substance: HYDROMORPHONE HYDROCHLORIDE
     Dosage: UNK, PRN (STRENGTH 1.3MG)
     Route: 065
     Dates: start: 2015
  4. DULCOLAX (BISACODYL) [Concomitant]
     Active Substance: BISACODYL
  5. HYDROMORPHONE [Interacting]
     Active Substance: HYDROMORPHONE
     Indication: PAIN
     Dosage: UNK
     Route: 065
     Dates: start: 201810
  6. ATORVASTATIN [Concomitant]
     Active Substance: ATORVASTATIN
  7. PALLADONE [Suspect]
     Active Substance: HYDROMORPHONE HYDROCHLORIDE
     Indication: BACK PAIN
     Dosage: STRENGTH 2.6MG
     Route: 065
     Dates: start: 201810
  8. ASPIRIN. [Concomitant]
     Active Substance: ASPIRIN
  9. DRONABINOL. [Interacting]
     Active Substance: DRONABINOL
     Indication: PAIN
     Dosage: UNK
     Route: 065
     Dates: start: 201810

REACTIONS (2)
  - Drug effect delayed [Recovered/Resolved]
  - Drug interaction [Recovered/Resolved]

NARRATIVE: CASE EVENT DATE: 201810
